FAERS Safety Report 19327939 (Version 1)
Quarter: 2021Q2

REPORT INFORMATION
  Report Type: Spontaneous
  Country: JP (occurrence: JP)
  Receive Date: 20210528
  Receipt Date: 20210528
  Transmission Date: 20210717
  Serious: Yes (Other)
  Sender: FDA-Public Use
  Company Number: JP-ABBVIE-21K-087-3925100-00

PATIENT
  Age: 43 Year
  Sex: Female

DRUGS (2)
  1. POPSCAINE [Suspect]
     Active Substance: LEVOBUPIVACAINE HYDROCHLORIDE
     Indication: POSTOPERATIVE ANALGESIA
     Route: 008
  2. POPSCAINE [Suspect]
     Active Substance: LEVOBUPIVACAINE HYDROCHLORIDE
     Indication: PAIN PROPHYLAXIS
     Route: 008

REACTIONS (9)
  - Disseminated intravascular coagulation [Unknown]
  - Shock haemorrhagic [Unknown]
  - Premature separation of placenta [Unknown]
  - Intra-abdominal haemorrhage [Unknown]
  - Intra-abdominal pressure increased [Unknown]
  - Haemorrhagic ascites [Unknown]
  - Pulmonary oedema [Unknown]
  - Live birth [Unknown]
  - Maternal exposure during pregnancy [Unknown]
